FAERS Safety Report 7345129-3 (Version None)
Quarter: 2011Q1

REPORT INFORMATION
  Report Type: 
  Country: None (occurrence: None)
  Receive Date: 20110310
  Receipt Date: 20110228
  Transmission Date: 20110831
  Serious: Yes (Other)
  Sender: FDA-Public Use
  Company Number: RO-ELI_LILLY_AND_COMPANY-RO201011007150

PATIENT
  Sex: Male
  Weight: 70 kg

DRUGS (4)
  1. ZYPADHERA [Suspect]
     Indication: SCHIZOPHRENIA, PARANOID TYPE
     Dosage: 210 MG, UNK
     Route: 030
     Dates: start: 20101108
  2. ZYPADHERA [Suspect]
     Dosage: 405 MG, OTHER
     Route: 048
     Dates: start: 20101125, end: 20101125
  3. CLONAZEPAM [Concomitant]
     Indication: INSOMNIA
     Dosage: 1 MG, DAILY (1/D)
     Route: 048
     Dates: start: 20101027
  4. VALPROIC ACID [Concomitant]
     Indication: AGGRESSION
     Dosage: 1200 UG, DAILY (1/D)
     Route: 048
     Dates: start: 20101027

REACTIONS (6)
  - ASTHENIA [None]
  - ANXIETY [None]
  - DIZZINESS [None]
  - SOMNOLENCE [None]
  - HYPOTENSION [None]
  - SEDATION [None]
